FAERS Safety Report 9800161 (Version 2)
Quarter: 2014Q1

REPORT INFORMATION
  Report Type: Spontaneous
  Country: FR (occurrence: FR)
  Receive Date: 20140106
  Receipt Date: 20140106
  Transmission Date: 20141002
  Serious: Yes (Hospitalization)
  Sender: FDA-Public Use
  Company Number: FR-ACORDA-ACO_36272_2013

PATIENT
  Age: 29 Year
  Sex: Female
  Weight: 94 kg

DRUGS (2)
  1. FAMPYRA [Suspect]
     Indication: GAIT DISTURBANCE
     Dosage: 10 MG, BID
     Route: 048
     Dates: start: 20130418, end: 20130501
  2. DAILY GE [Concomitant]
     Indication: CONTRACEPTION
     Dosage: UNK
     Dates: start: 201301

REACTIONS (1)
  - Hepatitis acute [Recovered/Resolved]
